FAERS Safety Report 20474509 (Version 1)
Quarter: 2022Q1

REPORT INFORMATION
  Report Type: Other
  Country: US (occurrence: None)
  Receive Date: 20220215
  Receipt Date: 20220215
  Transmission Date: 20220423
  Serious: Yes (Death)
  Sender: FDA-Public Use
  Company Number: US-ROCHE-3022482

PATIENT
  Sex: Female

DRUGS (15)
  1. XELODA [Suspect]
     Active Substance: CAPECITABINE
     Indication: Neoplasm malignant
     Dosage: TAKE 3 TABLETS BY MOUTH TWICE A DAY AFTER MEALS WITH A FULL GLASS OF WATER FOR 14 DAYS FOLLOWED BY
     Route: 048
  2. XELODA [Suspect]
     Active Substance: CAPECITABINE
     Indication: Breast cancer female
  3. XELODA [Suspect]
     Active Substance: CAPECITABINE
     Indication: Metastases to bone
  4. ASPIRIN [Concomitant]
     Active Substance: ASPIRIN
  5. ATORVASTATIN [Concomitant]
     Active Substance: ATORVASTATIN
  6. CALCIUM [Concomitant]
     Active Substance: CALCIUM
  7. COLACE [Concomitant]
     Active Substance: DOCUSATE SODIUM
  8. FISH OIL [Concomitant]
     Active Substance: FISH OIL
  9. IBRANCE [Concomitant]
     Active Substance: PALBOCICLIB
  10. LOSARTAN [Concomitant]
     Active Substance: LOSARTAN
  11. OXYCODONE [Concomitant]
     Active Substance: OXYCODONE
  12. PRILOSEC [Concomitant]
     Active Substance: OMEPRAZOLE MAGNESIUM
  13. VITAMIN D3 [Concomitant]
     Active Substance: CHOLECALCIFEROL
  14. VENLAFAXINE [Concomitant]
     Active Substance: VENLAFAXINE HYDROCHLORIDE
  15. ZOFRAN [Concomitant]
     Active Substance: ONDANSETRON HYDROCHLORIDE

REACTIONS (4)
  - Death [Fatal]
  - Stomatitis [Unknown]
  - Ill-defined disorder [Unknown]
  - Diarrhoea [Unknown]
